FAERS Safety Report 24262442 (Version 1)
Quarter: 2024Q3

REPORT INFORMATION
  Report Type: Spontaneous
  Country: US (occurrence: US)
  Receive Date: 20240829
  Receipt Date: 20240829
  Transmission Date: 20241017
  Serious: No
  Sender: LUPIN
  Company Number: US-LUPIN PHARMACEUTICALS INC.-2024-07860

PATIENT

DRUGS (1)
  1. LISINOPRIL [Suspect]
     Active Substance: LISINOPRIL
     Indication: Hypertension
     Dosage: UNK UNK, QD
     Route: 065

REACTIONS (6)
  - Diarrhoea [Unknown]
  - Cough [Unknown]
  - Constipation [Unknown]
  - Chest pain [Unknown]
  - Illness [Unknown]
  - Pain in extremity [Unknown]
